FAERS Safety Report 9921907 (Version 1)
Quarter: 2014Q1

REPORT INFORMATION
  Report Type: Other
  Country: PT (occurrence: PT)
  Receive Date: 20140225
  Receipt Date: 20140225
  Transmission Date: 20141002
  Serious: Yes (Other)
  Sender: FDA-Public Use
  Company Number: PT-BRISTOL-MYERS SQUIBB COMPANY-20289773

PATIENT
  Sex: 0

DRUGS (4)
  1. CETUXIMAB [Suspect]
     Indication: SQUAMOUS CELL CARCINOMA
     Dosage: DOSAGE: FOLLOWED BY 250 MG/M2.
     Dates: start: 200901, end: 201212
  2. CISPLATIN [Suspect]
     Indication: SQUAMOUS CELL CARCINOMA
     Dosage: DOSAGE: ON DAY 1.
     Dates: start: 200901, end: 201212
  3. CARBOPLATIN [Suspect]
     Indication: SQUAMOUS CELL CARCINOMA
     Dosage: 1 DF= AUC 5 UNITS UNSPECIFIED ON DAY 1.
     Dates: start: 200901, end: 201212
  4. 5-FLUOROURACIL [Suspect]
     Indication: SQUAMOUS CELL CARCINOMA
     Dosage: DOSAGES: ON DAY 1 TO DAY 4.
     Route: 042
     Dates: start: 200901, end: 201212

REACTIONS (1)
  - Haematotoxicity [Unknown]
